FAERS Safety Report 12237270 (Version 1)
Quarter: 2016Q2

REPORT INFORMATION
  Report Type: Spontaneous
  Country: SK (occurrence: SK)
  Receive Date: 20160405
  Receipt Date: 20160405
  Transmission Date: 20160815
  Serious: Yes (Death, Hospitalization)
  Sender: FDA-Public Use
  Company Number: SK-HORIZON-BUP-0044-2016

PATIENT
  Sex: Male

DRUGS (1)
  1. AMMONAPS TABLET [Suspect]
     Active Substance: SODIUM PHENYLBUTYRATE
     Indication: ORNITHINE TRANSCARBAMOYLASE DEFICIENCY
     Route: 048

REACTIONS (6)
  - Liver disorder [Fatal]
  - Brain oedema [Fatal]
  - Respiratory failure [Fatal]
  - Hyperammonaemic encephalopathy [Fatal]
  - Gastrointestinal obstruction [Fatal]
  - Metabolic disorder [Fatal]
